FAERS Safety Report 6386854-0 (Version None)
Quarter: 2009Q4

REPORT INFORMATION
  Report Type: 
  Country: None (occurrence: None)
  Receive Date: 20091002
  Receipt Date: 20090922
  Transmission Date: 20100525
  Serious: Yes (Hospitalization)
  Sender: FDA-Public Use
  Company Number: US-NOVOPROD-292043

PATIENT
  Sex: Male
  Weight: 113.38 kg

DRUGS (3)
  1. NOVOLOG [Suspect]
     Indication: INSULIN-REQUIRING TYPE 2 DIABETES MELLITUS
     Dosage: SLIDING SCALE/^TRIAL AND ERROR^
     Route: 058
     Dates: start: 20030401, end: 20071130
  2. NOVOLOG [Suspect]
     Dosage: SLIDING SCALE/^TRIAL AND ERROR^
     Dates: start: 20090301
  3. LANTUS [Suspect]
     Indication: INSULIN-REQUIRING TYPE 2 DIABETES MELLITUS
     Dosage: 10:1 RATIO
     Route: 058
     Dates: end: 20071130

REACTIONS (3)
  - BRADYCARDIA [None]
  - CEREBROVASCULAR ACCIDENT [None]
  - MYOCARDIAL INFARCTION [None]
